FAERS Safety Report 8013471-9 (Version None)
Quarter: 2011Q4

REPORT INFORMATION
  Report Type: 
  Country: None (occurrence: None)
  Receive Date: 20111229
  Receipt Date: 20111215
  Transmission Date: 20120403
  Serious: Yes (Other)
  Sender: FDA-Public Use
  Company Number: GB-MYLANLABS-2011S1024644

PATIENT
  Age: 22 Year
  Sex: Female

DRUGS (2)
  1. RISPERIDONE [Suspect]
     Dates: start: 20100415
  2. RISPERIDONE [Suspect]
     Indication: LEARNING DISABILITY
     Route: 048
     Dates: start: 20100708, end: 20100929

REACTIONS (2)
  - DISTURBANCE IN SOCIAL BEHAVIOUR [None]
  - OCULOGYRIC CRISIS [None]
